FAERS Safety Report 9362878 (Version 2)
Quarter: 2013Q3

REPORT INFORMATION
  Report Type: Report from Study
  Country: CA (occurrence: CA)
  Receive Date: 20130624
  Receipt Date: 20130821
  Transmission Date: 20140515
  Serious: Yes (Other)
  Sender: FDA-Public Use
  Company Number: CA-ROCHE-1239779

PATIENT
  Sex: Male

DRUGS (2)
  1. NUTROPIN [Suspect]
     Indication: INSULIN-LIKE GROWTH FACTOR DECREASED
     Dosage: 5 MG/ML
     Route: 065
     Dates: start: 201001, end: 201101
  2. NUTROPIN [Suspect]
     Route: 065
     Dates: start: 201301

REACTIONS (4)
  - Muscle rupture [Unknown]
  - Depression [Unknown]
  - Cyst [Not Recovered/Not Resolved]
  - Musculoskeletal pain [Unknown]
